FAERS Safety Report 7988166-8 (Version None)
Quarter: 2011Q4

REPORT INFORMATION
  Report Type: 
  Country: None (occurrence: None)
  Receive Date: 20111216
  Receipt Date: 20110209
  Transmission Date: 20120403
  Serious: No
  Sender: FDA-Public Use
  Company Number: US-BRISTOL-MYERS SQUIBB COMPANY-15432610

PATIENT
  Age: 61 Year
  Sex: Female
  Weight: 62 kg

DRUGS (7)
  1. ABILIFY [Suspect]
     Indication: ANXIETY
     Dosage: PILL TOOK 1 DOSE AT NIGHT
     Dates: start: 20101207, end: 20101201
  2. ABILIFY [Suspect]
     Indication: DEPRESSION
     Dosage: PILL TOOK 1 DOSE AT NIGHT
     Dates: start: 20101207, end: 20101201
  3. FORTAMET [Concomitant]
  4. GLIMEPIRIDE [Concomitant]
  5. CYMBALTA [Concomitant]
  6. SYNTHROID [Concomitant]
  7. ASPIRIN [Concomitant]

REACTIONS (6)
  - PALPITATIONS [None]
  - NERVOUSNESS [None]
  - DYSPHAGIA [None]
  - DYSPNOEA [None]
  - NAUSEA [None]
  - FEELING ABNORMAL [None]
